FAERS Safety Report 23724349 (Version 3)
Quarter: 2024Q2

REPORT INFORMATION
  Report Type: Spontaneous
  Country: US (occurrence: US)
  Receive Date: 20240409
  Receipt Date: 20240417
  Transmission Date: 20240716
  Serious: Yes (Other)
  Sender: FDA-Public Use
  Company Number: US-LUNDBECK-DKLU3076278

PATIENT
  Sex: Female

DRUGS (3)
  1. ONFI [Suspect]
     Active Substance: CLOBAZAM
     Indication: Epilepsy
     Route: 065
  2. ONFI [Suspect]
     Active Substance: CLOBAZAM
     Route: 065
     Dates: start: 20240408
  3. CLOBAZAM [Suspect]
     Active Substance: CLOBAZAM
     Indication: Epilepsy
     Route: 065

REACTIONS (11)
  - Dementia [Unknown]
  - Cognitive disorder [Unknown]
  - Sedation [Unknown]
  - Anticonvulsant drug level increased [Recovered/Resolved]
  - Feeling abnormal [Unknown]
  - Dizziness [Unknown]
  - Drooling [Unknown]
  - Skin reaction [Unknown]
  - Positron emission tomogram abnormal [Unknown]
  - Lip exfoliation [Not Recovered/Not Resolved]
  - Rash [Not Recovered/Not Resolved]

NARRATIVE: CASE EVENT DATE: 20240401
